FAERS Safety Report 9517931 (Version 1)
Quarter: 2013Q3

REPORT INFORMATION
  Report Type: Spontaneous
  Country: RO (occurrence: None)
  Receive Date: 20130910
  Receipt Date: 20130910
  Transmission Date: 20140515
  Serious: Yes (Other)
  Sender: FDA-Public Use
  Company Number: 2013P1019035

PATIENT
  Age: 24 Day
  Sex: Male

DRUGS (1)
  1. GENTAMICIN [Suspect]
     Indication: LOWER RESPIRATORY TRACT INFECTION

REACTIONS (6)
  - Weight increased [None]
  - Somnolence [None]
  - Renal tubular necrosis [None]
  - Nephropathy toxic [None]
  - Decreased appetite [None]
  - Hypertension [None]
